FAERS Safety Report 24812227 (Version 1)
Quarter: 2025Q1

REPORT INFORMATION
  Report Type: Spontaneous
  Country: US (occurrence: US)
  Receive Date: 20250106
  Receipt Date: 20250106
  Transmission Date: 20250409
  Serious: Yes (Hospitalization)
  Sender: CARA THERAPEUTICS
  Company Number: US-CARA THERAPEUTICS, INC.-2024-00601-US

PATIENT
  Age: 70 Year
  Sex: Male

DRUGS (3)
  1. KORSUVA [Suspect]
     Active Substance: DIFELIKEFALIN ACETATE
     Indication: Azotaemia
  2. KORSUVA [Suspect]
     Active Substance: DIFELIKEFALIN ACETATE
     Indication: Chronic kidney disease
  3. KORSUVA [Suspect]
     Active Substance: DIFELIKEFALIN ACETATE
     Indication: Chronic kidney disease-associated pruritus

REACTIONS (4)
  - Hepatic encephalopathy [Unknown]
  - Hyperammonaemia [Unknown]
  - Lethargy [Unknown]
  - Mental status changes [Recovered/Resolved]
